FAERS Safety Report 4731605-6 (Version None)
Quarter: 2005Q3

REPORT INFORMATION
  Report Type: 
  Country: None (occurrence: None)
  Receive Date: 20050722
  Receipt Date: 20050527
  Transmission Date: 20060218
  Serious: Yes (Other)
  Sender: FDA-Public Use
  Company Number: USA-2005-0020443

PATIENT
  Age: 45 Year
  Sex: Male

DRUGS (2)
  1. PALLADONE [Suspect]
     Indication: PAIN
     Dosage: 24 MG, Q24H, ORAL
     Route: 048
  2. LANTUS [Concomitant]

REACTIONS (2)
  - DIABETES MELLITUS [None]
  - HYPERGLYCAEMIA [None]
